FAERS Safety Report 5775940-1 (Version None)
Quarter: 2008Q2

REPORT INFORMATION
  Report Type: 
  Country: None (occurrence: None)
  Receive Date: 20080601
  Receipt Date: 20080220
  Transmission Date: 20081010
  Serious: No
  Sender: FDA-Public Use
  Company Number: 2006PV026613

PATIENT
  Age: 65 Year
  Sex: Female
  Weight: 89.4 kg

DRUGS (9)
  1. EXENATIDE(EXENATIDE) PEN,DISPOSABLE [Suspect]
     Indication: TYPE 2 DIABETES MELLITUS
     Dosage: 10 UG, 2/D, SUBCUTANEOUS
     Route: 058
     Dates: start: 20060101
  2. GLUCOPHAGE [Concomitant]
  3. GLUCOTROL [Concomitant]
  4. ALLOPURINOL [Concomitant]
  5. TRICOR [Concomitant]
  6. LOZOL [Concomitant]
  7. POTASSIUM (POTASSIUM) [Concomitant]
  8. TOPROL-XL [Concomitant]
  9. LIPITOR /NET/ (ATORVASTATIN CALCIUM) [Concomitant]

REACTIONS (7)
  - ARTHROPATHY [None]
  - BACK DISORDER [None]
  - BLOOD GLUCOSE DECREASED [None]
  - CONDITION AGGRAVATED [None]
  - PAIN IN EXTREMITY [None]
  - SCIATICA [None]
  - WEIGHT DECREASED [None]
